FAERS Safety Report 15536787 (Version 1)
Quarter: 2018Q4

REPORT INFORMATION
  Report Type: Report from Study
  Country: LB (occurrence: LB)
  Receive Date: 20181022
  Receipt Date: 20181022
  Transmission Date: 20190205
  Serious: Yes (Death, Other)
  Sender: FDA-Public Use
  Company Number: LB-ROCHE-2195942

PATIENT
  Age: 23 Year
  Sex: Female

DRUGS (6)
  1. VENETOCLAX. [Suspect]
     Active Substance: VENETOCLAX
     Route: 065
     Dates: start: 20180101
  2. VENETOCLAX. [Suspect]
     Active Substance: VENETOCLAX
     Indication: ACUTE LYMPHOCYTIC LEUKAEMIA
     Route: 065
     Dates: start: 20171229
  3. VENETOCLAX. [Suspect]
     Active Substance: VENETOCLAX
     Route: 065
     Dates: start: 20171230
  4. VENETOCLAX. [Suspect]
     Active Substance: VENETOCLAX
     Route: 065
     Dates: end: 20180131
  5. VENETOCLAX. [Suspect]
     Active Substance: VENETOCLAX
     Route: 065
     Dates: start: 20171231
  6. VENETOCLAX. [Suspect]
     Active Substance: VENETOCLAX
     Route: 065
     Dates: start: 20180102

REACTIONS (8)
  - Febrile neutropenia [Unknown]
  - Pancytopenia [Unknown]
  - Anaemia [Unknown]
  - Neutropenia [Not Recovered/Not Resolved]
  - Organ failure [Unknown]
  - Infection [Unknown]
  - Tumour lysis syndrome [Recovering/Resolving]
  - Thrombocytopenia [Not Recovered/Not Resolved]
